FAERS Safety Report 8018765-9 (Version None)
Quarter: 2012Q1

REPORT INFORMATION
  Report Type: 
  Country: None (occurrence: None)
  Receive Date: 20120103
  Receipt Date: 20111227
  Transmission Date: 20120608
  Serious: Yes (Hospitalization, Disabling, Other)
  Sender: FDA-Public Use
  Company Number: BR-ABBOTT-11P-020-0714542-00

PATIENT
  Sex: Female
  Weight: 70 kg

DRUGS (4)
  1. HUMIRA [Suspect]
     Indication: RHEUMATOID ARTHRITIS
     Route: 058
     Dates: start: 20091101, end: 20110201
  2. CAPTOPRIL [Concomitant]
     Indication: HYPERTENSION
  3. DIAZEPAM [Concomitant]
     Indication: SEDATIVE THERAPY
     Route: 048
     Dates: end: 20110501
  4. ISONIAZID [Concomitant]
     Indication: ANTIBIOTIC PROPHYLAXIS
     Route: 048

REACTIONS (11)
  - DECREASED APPETITE [None]
  - OSTEOARTHRITIS [None]
  - ABASIA [None]
  - BLOOD PRESSURE DECREASED [None]
  - DEVICE DISLOCATION [None]
  - JOINT LOCK [None]
  - DEPRESSION [None]
  - ERYTHEMA [None]
  - BEDRIDDEN [None]
  - ASTHENIA [None]
  - JOINT STIFFNESS [None]
